FAERS Safety Report 25085402 (Version 1)
Quarter: 2025Q1

REPORT INFORMATION
  Report Type: Spontaneous
  Country: US (occurrence: US)
  Receive Date: 20250317
  Receipt Date: 20250317
  Transmission Date: 20250409
  Serious: No
  Sender: Haleon PLC
  Company Number: US-HALEON-2233337

PATIENT
  Age: 41 Year
  Sex: Female

DRUGS (1)
  1. ALLI [Suspect]
     Active Substance: ORLISTAT
     Indication: Weight decreased
     Dates: start: 20250227, end: 20250305

REACTIONS (2)
  - Flatulence [Recovered/Resolved]
  - Abdominal distension [Recovered/Resolved]
